FAERS Safety Report 4635992-9 (Version None)
Quarter: 2005Q2

REPORT INFORMATION
  Report Type: 
  Country: None (occurrence: None)
  Receive Date: 20050415
  Receipt Date: 20050325
  Transmission Date: 20051028
  Serious: Yes (Hospitalization)
  Sender: FDA-Public Use
  Company Number: 200512767GDDC

PATIENT
  Age: 77 Year
  Sex: Male

DRUGS (11)
  1. MONO-TILDIEM [Suspect]
     Indication: SUICIDE ATTEMPT
     Route: 048
     Dates: start: 20050311, end: 20050311
  2. AMARYL [Suspect]
     Indication: DIABETES MELLITUS
     Route: 048
  3. EQUANIL [Suspect]
     Indication: SUICIDE ATTEMPT
     Route: 048
     Dates: start: 20050311, end: 20050311
  4. HALDOL FAIBLE SOLUTION BUVABLE A 0.5 MG/ML [Suspect]
     Indication: SUICIDE ATTEMPT
     Route: 048
     Dates: start: 20050311, end: 20050311
  5. METFORMIN HCL [Suspect]
     Indication: DIABETES MELLITUS NON-INSULIN-DEPENDENT
  6. MONO-TILDIEM [Concomitant]
     Indication: ANGINA PECTORIS
     Dosage: DOSE: UNK
     Route: 048
     Dates: end: 20050310
  7. MONO-TILDIEM [Concomitant]
     Indication: HYPERTENSION
     Dosage: DOSE: UNK
     Route: 048
     Dates: end: 20050310
  8. IMOVANE [Concomitant]
     Indication: SLEEP DISORDER
     Dosage: DOSE UNIT: UNITS
     Route: 048
     Dates: start: 20050311, end: 20050311
  9. LODALES [Concomitant]
     Indication: CARDIOVASCULAR DISORDER
     Route: 048
  10. FLUOXETINE [Concomitant]
     Indication: DEPRESSION
     Route: 048
  11. MIANSERIN [Concomitant]
     Indication: DEPRESSION
     Dosage: DOSE: UNK
     Route: 048

REACTIONS (7)
  - AGITATION [None]
  - DRUG TOXICITY [None]
  - HAEMATEMESIS [None]
  - HYPERGLYCAEMIA [None]
  - INTENTIONAL MISUSE [None]
  - SOMNOLENCE [None]
  - SUICIDE ATTEMPT [None]
